FAERS Safety Report 11082434 (Version 1)
Quarter: 2015Q2

REPORT INFORMATION
  Report Type: Spontaneous
  Country: JP (occurrence: JP)
  Receive Date: 20150501
  Receipt Date: 20150501
  Transmission Date: 20150821
  Serious: Yes (Hospitalization, Other)
  Sender: FDA-Public Use
  Company Number: JP-SANTEN-0742011

PATIENT

DRUGS (15)
  1. DIFENIDOL HYDROCHLORIDE [Concomitant]
     Active Substance: DIPHENIDOL HYDROCHLORIDE
     Indication: MENIERE^S DISEASE
     Dosage: UNK, UNK, UNK
     Route: 048
     Dates: start: 2008
  2. FLUMETHOLON [Concomitant]
     Active Substance: FLUOROMETHOLONE
     Indication: CONJUNCTIVITIS ALLERGIC
     Dosage: UNK, TID
     Route: 047
     Dates: start: 2009
  3. OMEPRAL                            /00661201/ [Concomitant]
     Active Substance: OMEPRAZOLE
     Indication: GASTRITIS PROPHYLAXIS
     Dosage: 10 MG, SINGLE
     Route: 048
     Dates: start: 20070629
  4. MICARDIS [Concomitant]
     Active Substance: TELMISARTAN
     Indication: HYPERTENSION
     Dosage: 40 MG/G, SINGLE
     Route: 048
     Dates: start: 20080620, end: 20100906
  5. PLACEBO [Suspect]
     Active Substance: UNSPECIFIED INGREDIENT
     Indication: RHEUMATOID ARTHRITIS
     Dosage: UNK UNK, BID
     Route: 048
     Dates: start: 20100215, end: 20100630
  6. CRAVIT [Suspect]
     Active Substance: LEVOFLOXACIN
     Dosage: UNK UNK, TID
     Route: 047
     Dates: start: 2009
  7. HYALEIN [Suspect]
     Active Substance: HYALURONATE SODIUM
     Dosage: UNK, QID
     Route: 047
     Dates: start: 2009
  8. FOLIAMIN [Concomitant]
     Active Substance: FOLIC ACID
     Indication: RHEUMATOID ARTHRITIS
     Dosage: 5 MG, WEEKLY
     Route: 048
     Dates: start: 20090826, end: 20100629
  9. METHYCOBAL [Concomitant]
     Active Substance: METHYLCOBALAMIN
     Indication: MENIERE^S DISEASE
     Dosage: UNK,UKN, AS NEEDED
     Route: 048
     Dates: start: 2008
  10. ADETPHOS [Concomitant]
     Active Substance: ADENOSINE TRIPHOSPHATE
     Indication: MENIERE^S DISEASE
     Dosage: UNK, AS NEEDED
     Route: 048
     Dates: start: 2008
  11. ALFAROL [Concomitant]
     Active Substance: ALFACALCIDOL
     Indication: OSTEOPOROSIS
     Dosage: 0.25 ?G, SINGLE
     Route: 048
     Dates: start: 20041028
  12. METHOTREXATE [Suspect]
     Active Substance: METHOTREXATE
     Dosage: 10 MG/WEEK
     Route: 048
     Dates: start: 20091221, end: 20100628
  13. METHOTREXATE [Suspect]
     Active Substance: METHOTREXATE
     Dosage: 12.5 MG/WEEK
     Route: 048
     Dates: start: 20070730, end: 20090303
  14. NORVASC [Concomitant]
     Active Substance: AMLODIPINE BESYLATE
     Dosage: 5 MG, SINGLE
     Route: 048
     Dates: start: 20091024
  15. METHOTREXATE [Suspect]
     Active Substance: METHOTREXATE
     Indication: RHEUMATOID ARTHRITIS
     Dosage: 15 MG/WEEK
     Route: 048
     Dates: start: 20090309, end: 20091215

REACTIONS (1)
  - Basal cell carcinoma [Recovering/Resolving]

NARRATIVE: CASE EVENT DATE: 20100628
